FAERS Safety Report 11025533 (Version 1)
Quarter: 2015Q2

REPORT INFORMATION
  Report Type: Spontaneous
  Country: US (occurrence: None)
  Receive Date: 20150413
  Receipt Date: 20150413
  Transmission Date: 20150821
  Serious: No
  Sender: FDA-Public Use
  Company Number: None

PATIENT
  Age: 41 Year
  Sex: Female

DRUGS (1)
  1. ENBREL [Suspect]
     Active Substance: ETANERCEPT
     Dosage: SUBCUTANEOUS   INJECTABLE   WEEKLY
     Route: 058
     Dates: start: 20150410

REACTIONS (3)
  - Condition aggravated [None]
  - Burning sensation [None]
  - Therapy change [None]

NARRATIVE: CASE EVENT DATE: 20150409
